FAERS Safety Report 6073208-X (Version None)
Quarter: 2009Q1

REPORT INFORMATION
  Report Type: 
  Country: None (occurrence: None)
  Receive Date: 20090211
  Receipt Date: 20090203
  Transmission Date: 20090719
  Serious: Yes (Hospitalization)
  Sender: FDA-Public Use
  Company Number: US-ASTRAZENECA-2009UW03167

PATIENT
  Age: 64 Year
  Sex: Male

DRUGS (8)
  1. NEXIUM [Suspect]
     Indication: GASTROOESOPHAGEAL REFLUX DISEASE
     Route: 048
     Dates: start: 20090101
  2. INSULIN [Concomitant]
  3. CYCLOSPORINE [Concomitant]
  4. PREDNISONE TAB [Concomitant]
  5. LIPITOR [Concomitant]
  6. LYRICA [Concomitant]
  7. FLOMAX [Concomitant]
  8. ACTOS [Concomitant]

REACTIONS (4)
  - CONCUSSION [None]
  - CONFUSIONAL STATE [None]
  - FALL [None]
  - TRANSIENT ISCHAEMIC ATTACK [None]
